FAERS Safety Report 10939750 (Version 1)
Quarter: 2015Q1

REPORT INFORMATION
  Report Type: Spontaneous
  Country: US (occurrence: US)
  Receive Date: 20150321
  Receipt Date: 20150321
  Transmission Date: 20150721
  Serious: Yes (Death)
  Sender: FDA-Public Use
  Company Number: US-WATSON-2015-04968

PATIENT
  Age: 56 Year
  Sex: Male

DRUGS (4)
  1. ATENOLOL (WATSON LABORATORIES) [Suspect]
     Active Substance: ATENOLOL
     Indication: PRODUCT USED FOR UNKNOWN INDICATION
     Dosage: UNKNOWN
     Route: 065
  2. AMLODIPINE [Suspect]
     Active Substance: AMLODIPINE BESYLATE
     Indication: PRODUCT USED FOR UNKNOWN INDICATION
     Dosage: UNKNOWN
     Route: 065
  3. LISINOPRIL (WATSON LABORATORIES) [Suspect]
     Active Substance: LISINOPRIL
     Indication: PRODUCT USED FOR UNKNOWN INDICATION
     Dosage: UNKNOWN
     Route: 065
  4. HYDROCHLOROTHIAZIDE (ACTAVIS LABORATORIES UT) [Suspect]
     Active Substance: HYDROCHLOROTHIAZIDE
     Indication: PRODUCT USED FOR UNKNOWN INDICATION
     Dosage: UNKNOWN
     Route: 065

REACTIONS (2)
  - Completed suicide [Fatal]
  - Toxicity to various agents [Fatal]
